FAERS Safety Report 5761066-X (Version None)
Quarter: 2008Q2

REPORT INFORMATION
  Report Type: 
  Country: None (occurrence: None)
  Receive Date: 20080606
  Receipt Date: 20080605
  Transmission Date: 20081010
  Serious: Yes (Other)
  Sender: FDA-Public Use
  Company Number: A0708335A

PATIENT
  Sex: Female

DRUGS (2)
  1. ALLI [Suspect]
     Dates: start: 20080201
  2. COUGH SYRUP WITH CODEINE [Suspect]
     Route: 048

REACTIONS (41)
  - ABDOMINAL DISTENSION [None]
  - ABDOMINAL PAIN [None]
  - ABDOMINAL PAIN UPPER [None]
  - ANOREXIA [None]
  - ARTHRALGIA [None]
  - ARTHROPATHY [None]
  - BRONCHITIS [None]
  - CONSTIPATION [None]
  - COUGH [None]
  - DEFAECATION URGENCY [None]
  - DISCOMFORT [None]
  - DRUG INEFFECTIVE [None]
  - DYSMENORRHOEA [None]
  - DYSPNOEA [None]
  - FATIGUE [None]
  - FEELING ABNORMAL [None]
  - FLUID RETENTION [None]
  - FOOD CRAVING [None]
  - GASTROENTERITIS VIRAL [None]
  - GASTROINTESTINAL DISORDER [None]
  - HEADACHE [None]
  - ILL-DEFINED DISORDER [None]
  - INFLUENZA [None]
  - LUNG DISORDER [None]
  - MALAISE [None]
  - MENSTRUATION IRREGULAR [None]
  - MENTAL STATUS CHANGES [None]
  - MIGRAINE [None]
  - MULTIPLE ALLERGIES [None]
  - MUSCLE SPASMS [None]
  - MUSCLE STRAIN [None]
  - PAIN [None]
  - PNEUMONIA [None]
  - POLLAKIURIA [None]
  - SALT CRAVING [None]
  - SINUS DISORDER [None]
  - SINUS HEADACHE [None]
  - SLUGGISHNESS [None]
  - STRESS [None]
  - WEIGHT FLUCTUATION [None]
  - WEIGHT INCREASED [None]
